FAERS Safety Report 8478308-2 (Version None)
Quarter: 2012Q2

REPORT INFORMATION
  Report Type: 
  Country: None (occurrence: None)
  Receive Date: 20120629
  Receipt Date: 20120618
  Transmission Date: 20120825
  Serious: Yes (Hospitalization)
  Sender: FDA-Public Use
  Company Number: JP-AMGEN-US293085

PATIENT
  Age: 69 Year
  Sex: Female
  Weight: 41.992 kg

DRUGS (9)
  1. METHOTREXATE [Suspect]
     Dosage: 10 MG, QWK
     Route: 048
     Dates: start: 20020531, end: 20080415
  2. LOXOPROFEN SODIUM [Concomitant]
     Dosage: UNK UNK, UNK
     Route: 048
  3. GLIMEPIRIDE [Concomitant]
     Dosage: 1 MG, QD
     Route: 048
     Dates: start: 20030620, end: 20080414
  4. ETANERCEPT [Suspect]
     Indication: RHEUMATOID ARTHRITIS
     Dosage: 25 MG, QWK
     Route: 058
     Dates: start: 20071113, end: 20080415
  5. ENALAPRIL MALEATE [Concomitant]
     Dosage: UNK UNK, UNK
     Route: 048
  6. PREDNISOLONE [Suspect]
     Dosage: 2.5 MG, QD
     Route: 048
     Dates: start: 20020531, end: 20080415
  7. FOLIAMIN [Concomitant]
     Dosage: UNK UNK, UNK
     Route: 048
  8. NIFEDIPINE [Concomitant]
     Dosage: 20 MG, QD
  9. PITAVASTATIN CALCIUM [Concomitant]
     Dosage: 2 MG, QD
     Route: 048
     Dates: start: 20030912, end: 20080414

REACTIONS (2)
  - HISTIOCYTOSIS HAEMATOPHAGIC [None]
  - URINARY TRACT INFECTION [None]
